FAERS Safety Report 11023018 (Version 2)
Quarter: 2015Q2

REPORT INFORMATION
  Report Type: Spontaneous
  Country: US (occurrence: US)
  Receive Date: 20150413
  Receipt Date: 20150413
  Transmission Date: 20150821
  Serious: No
  Sender: FDA-Public Use
  Company Number: US-ASTELLAS-2014US020590

PATIENT
  Sex: Female

DRUGS (2)
  1. PROTOPIC [Suspect]
     Active Substance: TACROLIMUS
     Dosage: UNK, TWICE DAILY
     Route: 061
  2. PROTOPIC [Suspect]
     Active Substance: TACROLIMUS
     Indication: RASH
     Dosage: UNK, TWICE DAILY
     Route: 061

REACTIONS (5)
  - Inappropriate schedule of drug administration [Unknown]
  - Application site scab [Recovered/Resolved]
  - Off label use [Unknown]
  - Application site pain [Recovered/Resolved]
  - Application site pruritus [Recovering/Resolving]
